FAERS Safety Report 13677941 (Version 1)
Quarter: 2017Q2

REPORT INFORMATION
  Report Type: Spontaneous
  Country: JP (occurrence: JP)
  Receive Date: 20170622
  Receipt Date: 20170622
  Transmission Date: 20170830
  Serious: Yes (Life-Threatening, Hospitalization, Other)
  Sender: FDA-Public Use
  Company Number: JP-ALKEM LABORATORIES LIMITED-JP-ALKEM-2017-00343

PATIENT
  Age: 81 Year
  Sex: Female

DRUGS (3)
  1. CALCIUM GLUCONATE 8.5% [Suspect]
     Active Substance: CALCIUM GLUCONATE
     Indication: PRODUCT USED FOR UNKNOWN INDICATION
     Dosage: INITIATED AT A RATE OF 0.7 ML/KG/H
  2. AMLODIPINE BESYLATE. [Suspect]
     Active Substance: AMLODIPINE BESYLATE
     Indication: SUICIDE ATTEMPT
     Dosage: 50 DF ONCE TOTAL
     Route: 048
  3. AMLODIPINE BESYLATE. [Suspect]
     Active Substance: AMLODIPINE BESYLATE
     Indication: HYPERTENSION
     Dosage: UNKNOWN
     Route: 048

REACTIONS (8)
  - Altered state of consciousness [Recovered/Resolved]
  - Acute kidney injury [Recovered/Resolved]
  - Overdose [Recovered/Resolved]
  - Suicidal ideation [None]
  - Hyperkalaemia [Recovered/Resolved]
  - Hypoglycaemia [None]
  - Bradycardia [Recovered/Resolved]
  - Hypotension [Recovered/Resolved]
